FAERS Safety Report 8576778-2 (Version None)
Quarter: 2012Q3

REPORT INFORMATION
  Report Type: 
  Country: None (occurrence: None)
  Receive Date: 20120807
  Receipt Date: 20120726
  Transmission Date: 20120928
  Serious: No
  Sender: FDA-Public Use
  Company Number: US-ASTRAZENECA-2012SE53078

PATIENT
  Age: 82 Year
  Sex: Female

DRUGS (3)
  1. TOPROL-XL [Suspect]
     Route: 048
  2. HYDROCHLOROTHIAZDE TAB [Concomitant]
  3. TOPROL-XL [Suspect]
     Route: 065

REACTIONS (2)
  - MALAISE [None]
  - ADVERSE DRUG REACTION [None]
